FAERS Safety Report 13404697 (Version 1)
Quarter: 2017Q2

REPORT INFORMATION
  Report Type: Spontaneous
  Country: US (occurrence: US)
  Receive Date: 20170405
  Receipt Date: 20170405
  Transmission Date: 20170830
  Serious: Yes (Hospitalization)
  Sender: FDA-Public Use
  Company Number: None

PATIENT
  Age: 60 Year
  Sex: Female
  Weight: 99.1 kg

DRUGS (17)
  1. NORCO [Concomitant]
     Active Substance: ACETAMINOPHEN\HYDROCODONE BITARTRATE
  2. ZOFRAN [Concomitant]
     Active Substance: ONDANSETRON HYDROCHLORIDE
  3. LIDODERM [Concomitant]
     Active Substance: LIDOCAINE
  4. SPIRIVA [Concomitant]
     Active Substance: TIOTROPIUM BROMIDE MONOHYDRATE
  5. LISINOPRIL. [Concomitant]
     Active Substance: LISINOPRIL
  6. ZYRTEC [Concomitant]
     Active Substance: CETIRIZINE HYDROCHLORIDE
  7. GABAPENTIN. [Concomitant]
     Active Substance: GABAPENTIN
  8. LIDEX [Concomitant]
     Active Substance: FLUOCINONIDE
  9. LASIX [Concomitant]
     Active Substance: FUROSEMIDE
  10. SYNALAR [Concomitant]
     Active Substance: FLUOCINOLONE ACETONIDE
  11. BACLOFEN. [Concomitant]
     Active Substance: BACLOFEN
  12. FLONASE [Concomitant]
     Active Substance: FLUTICASONE PROPIONATE
  13. HUMALOG [Concomitant]
     Active Substance: INSULIN LISPRO
  14. MULTIVITAMIN [Concomitant]
     Active Substance: VITAMINS
  15. EPCLUSA [Suspect]
     Active Substance: SOFOSBUVIR\VELPATASVIR
     Indication: HEPATITIS C
     Dosage: 1 TABLET ONCE DAILY BY MOUTH
     Route: 048
     Dates: start: 20160903, end: 20161126
  16. LACTULOSE. [Concomitant]
     Active Substance: LACTULOSE
  17. MYCOSTATIN [Concomitant]
     Active Substance: NYSTATIN

REACTIONS (2)
  - Chronic obstructive pulmonary disease [None]
  - Pneumonia [None]

NARRATIVE: CASE EVENT DATE: 20161220
